FAERS Safety Report 9645033 (Version 1)
Quarter: 2013Q4

REPORT INFORMATION
  Report Type: Spontaneous
  Country: US (occurrence: US)
  Receive Date: 20131025
  Receipt Date: 20131025
  Transmission Date: 20140711
  Serious: No
  Sender: FDA-Public Use
  Company Number: US-PFIZER INC-2013302643

PATIENT
  Sex: Female
  Weight: 43.1 kg

DRUGS (4)
  1. CELEBREX [Suspect]
     Indication: MIGRAINE
     Dosage: UNK
     Route: 048
  2. CELEBREX [Suspect]
     Dosage: 200 MG, 1X/DAY
     Route: 048
  3. CYMBALTA [Concomitant]
     Indication: DEPRESSION
     Dosage: 30MG IN MORNING AND 60MG IN EVENING, UNK
  4. PROTONIX [Concomitant]
     Indication: GASTROOESOPHAGEAL REFLUX DISEASE
     Dosage: UNK

REACTIONS (3)
  - Off label use [Unknown]
  - Hypertension [Unknown]
  - Blood sodium decreased [Unknown]
